FAERS Safety Report 4678974-3 (Version None)
Quarter: 2005Q2

REPORT INFORMATION
  Report Type: 
  Country: None (occurrence: None)
  Receive Date: 20050531
  Receipt Date: 20050516
  Transmission Date: 20051028
  Serious: Yes (Other)
  Sender: FDA-Public Use
  Company Number: A0558786A

PATIENT
  Age: 6 Year
  Sex: Male

DRUGS (4)
  1. LAMICTAL [Suspect]
     Indication: EPILEPSY
     Dosage: SEE IMAGE/ORAL
     Route: 048
  2. CLONAZEPAM [Concomitant]
  3. LEVETIRACETAM [Concomitant]
  4. DIAZEPAM [Concomitant]

REACTIONS (3)
  - BLOOD GLUCOSE INCREASED [None]
  - BLOOD KETONE BODY DECREASED [None]
  - CONVULSION [None]
